FAERS Safety Report 6306820-0 (Version None)
Quarter: 2009Q3

REPORT INFORMATION
  Report Type: 
  Country: None (occurrence: None)
  Receive Date: 20090811
  Receipt Date: 20090811
  Transmission Date: 20100115
  Serious: Yes (Death)
  Sender: FDA-Public Use
  Company Number: None

PATIENT
  Age: 8 Year
  Sex: Male
  Weight: 31 kg

DRUGS (1)
  1. NIFURTIMOX 120MG TABS [Suspect]
     Indication: NEUROBLASTOMA RECURRENT
     Dosage: 30MG/KG/DAY PO DIV TID
     Route: 048
     Dates: start: 20090508

REACTIONS (14)
  - ACIDOSIS [None]
  - EMPHYSEMA [None]
  - HILAR LYMPHADENOPATHY [None]
  - HYPERGLYCAEMIA [None]
  - HYPERKALAEMIA [None]
  - HYPOPHOSPHATAEMIA [None]
  - MENTAL STATUS CHANGES [None]
  - MULTI-ORGAN DISORDER [None]
  - OBSTRUCTIVE AIRWAYS DISORDER [None]
  - PANCYTOPENIA [None]
  - PNEUMONIA PRIMARY ATYPICAL [None]
  - PNEUMOTHORAX [None]
  - SUBCUTANEOUS EMPHYSEMA [None]
  - THERAPEUTIC RESPONSE DECREASED [None]
